FAERS Safety Report 7483186-4 (Version None)
Quarter: 2011Q2

REPORT INFORMATION
  Report Type: 
  Country: None (occurrence: None)
  Receive Date: 20110516
  Receipt Date: 20100506
  Transmission Date: 20111010
  Serious: Yes (Other)
  Sender: FDA-Public Use
  Company Number: DE-GENENTECH-318615

PATIENT
  Sex: Female

DRUGS (2)
  1. AVASTIN [Concomitant]
     Indication: PRODUCT USED FOR UNKNOWN INDICATION
  2. LUCENTIS [Suspect]
     Indication: MACULAR DEGENERATION
     Dosage: UNK
     Route: 031
     Dates: start: 20081121

REACTIONS (5)
  - EYE INFLAMMATION [None]
  - VISUAL IMPAIRMENT [None]
  - VITREOUS FLOATERS [None]
  - INTRAOCULAR PRESSURE INCREASED [None]
  - METAMORPHOPSIA [None]
